FAERS Safety Report 8873883 (Version 1)
Quarter: 2012Q4

REPORT INFORMATION
  Report Type: 
  Country: US (occurrence: US)
  Receive Date: 20121030
  Receipt Date: 20121030
  Transmission Date: 20130627
  Serious: Yes (Other)
  Sender: FDA-Public Use
  Company Number: US-MYLANLABS-2012S1021844

PATIENT
  Age: 51 Year
  Sex: Male
  Weight: 78.93 kg

DRUGS (13)
  1. FLUVOXAMINE MALEATE [Suspect]
     Indication: PSYCHOTIC DISORDER
     Route: 048
     Dates: start: 20100525, end: 20121001
  2. FLUVOXAMINE MALEATE [Suspect]
     Indication: MAJOR DEPRESSION
     Route: 048
     Dates: start: 20100525, end: 20121001
  3. FLUVOXAMINE MALEATE [Suspect]
     Indication: PSYCHOTIC DISORDER
     Route: 048
     Dates: start: 20121006, end: 20121017
  4. FLUVOXAMINE MALEATE [Suspect]
     Indication: MAJOR DEPRESSION
     Route: 048
     Dates: start: 20121006, end: 20121017
  5. FLUVOXAMINE MALEATE [Suspect]
     Indication: PSYCHOTIC DISORDER
     Route: 048
     Dates: start: 20121017
  6. FLUVOXAMINE MALEATE [Suspect]
     Indication: MAJOR DEPRESSION
     Route: 048
     Dates: start: 20121017
  7. LIBRIUM [Concomitant]
     Route: 048
  8. DALMANE [Concomitant]
     Route: 048
  9. VASERETIC [Concomitant]
     Dosage: 10/25mg
     Route: 048
  10. TRUVADA [Concomitant]
     Dosage: 200/300mg
     Route: 048
  11. PRILOSEC [Concomitant]
     Route: 048
  12. BENTYL [Concomitant]
     Route: 048
  13. TYLENOL [Concomitant]
     Indication: PAIN
     Route: 048

REACTIONS (5)
  - Convulsion [Recovered/Resolved]
  - Suicidal ideation [Recovered/Resolved]
  - Amnesia [Not Recovered/Not Resolved]
  - Arthralgia [Not Recovered/Not Resolved]
  - Headache [Not Recovered/Not Resolved]
